FAERS Safety Report 4396795-6 (Version None)
Quarter: 2004Q3

REPORT INFORMATION
  Report Type: 
  Country: None (occurrence: None)
  Receive Date: 20040713
  Receipt Date: 20040713
  Transmission Date: 20050211
  Serious: No
  Sender: FDA-Public Use
  Company Number: None

PATIENT
  Sex: Male
  Weight: 126.1 kg

DRUGS (3)
  1. GLIADEL [Suspect]
     Indication: GLIOBLASTOMA MULTIFORME
     Dosage: 7.7 MG PER WAFER MAX OF 8
     Dates: start: 20040617
  2. O6-BENZYLGUANINE (O6BG) [Suspect]
     Indication: GLIOBLASTOMA MULTIFORME
     Dosage: 120 MG/M2 INFUSION X 5 DAYS
     Dates: start: 20040617, end: 20040622
  3. KEPPRA [Concomitant]

REACTIONS (5)
  - DEEP VEIN THROMBOSIS [None]
  - HYPERGLYCAEMIA [None]
  - POST PROCEDURAL COMPLICATION [None]
  - PSEUDOMENINGOCELE [None]
  - WOUND COMPLICATION [None]
